FAERS Safety Report 19278208 (Version 2)
Quarter: 2021Q3

REPORT INFORMATION
  Report Type: Report from Study
  Country: CN (occurrence: CN)
  Receive Date: 20210520
  Receipt Date: 20210901
  Transmission Date: 20211014
  Serious: Yes (Hospitalization)
  Sender: FDA-Public Use
  Company Number: CN-ROCHE-2285466

PATIENT
  Age: 3 Year
  Sex: Male
  Weight: 31.5 kg

DRUGS (5)
  1. BLINDED RISDIPLAM [Suspect]
     Active Substance: RISDIPLAM
     Indication: SPINAL MUSCULAR ATROPHY
     Dosage: MOST RECENT DOSE PRIOR TO SAE 10/MAR/2019?MOST RECENT DOSE PRIOR TO SAE ONSET: 01/NOV/2020
     Route: 048
     Dates: start: 20180720
  2. AZITHROMYCIN;SODIUM CHLORIDE [Concomitant]
     Dosage: DAILY DOSE: 0.2G, 200ML
     Dates: start: 20210730, end: 20210803
  3. CEFOPERAZONE SODIUM AND SULBACTAM SODIUM [Concomitant]
     Active Substance: CEFOPERAZONE SODIUM\SULBACTAM SODIUM
     Dosage: DAILY DOSE: 1.4 G, 200 ML
     Dates: start: 20210730, end: 20210803
  4. RISDIPLAM. [Suspect]
     Active Substance: RISDIPLAM
     Indication: SPINAL MUSCULAR ATROPHY
     Dosage: DOSAGE FORM: 60 MG/BOTTLE
     Route: 048
     Dates: start: 20180720
  5. MONTELUKAST SODIUM. [Concomitant]
     Active Substance: MONTELUKAST SODIUM
     Route: 048
     Dates: start: 20210728, end: 20210803

REACTIONS (4)
  - Pneumonia [Recovered/Resolved]
  - Asthma [Recovered/Resolved]
  - Pneumonia mycoplasmal [Recovered/Resolved]
  - Pneumonia [Recovered/Resolved]

NARRATIVE: CASE EVENT DATE: 20181101
